FAERS Safety Report 5056872-3 (Version None)
Quarter: 2006Q2

REPORT INFORMATION
  Report Type: 
  Country: None (occurrence: None)
  Receive Date: 20060622
  Receipt Date: 20050511
  Transmission Date: 20061013
  Serious: Yes (Other)
  Sender: FDA-Public Use
  Company Number: US-JNJFOC-20050503712

PATIENT
  Sex: Male
  Weight: 2.268 kg

DRUGS (6)
  1. DURAGESIC-100 [Suspect]
     Indication: DRUG EXPOSURE DURING PREGNANCY
     Dosage: 75 UG/HR, 1 IN 48 HOUR, INTRAUTERINE
     Route: 015
     Dates: start: 20040901, end: 20050502
  2. GABITRIL [Concomitant]
  3. KEPPRA [Concomitant]
  4. LIDOCAINE [Concomitant]
  5. LEVOXYL [Concomitant]
  6. SOMA [Concomitant]

REACTIONS (1)
  - DRUG WITHDRAWAL SYNDROME NEONATAL [None]
